FAERS Safety Report 20771665 (Version 2)
Quarter: 2022Q2

REPORT INFORMATION
  Report Type: Spontaneous
  Country: GB (occurrence: GB)
  Receive Date: 20220430
  Receipt Date: 20220511
  Transmission Date: 20220721
  Serious: Yes (Other)
  Sender: FDA-Public Use
  Company Number: GB-ABBVIE-22K-167-4306722-00

PATIENT
  Age: 80 Year
  Sex: Female

DRUGS (7)
  1. PRAMIPEXOLE [Suspect]
     Active Substance: PRAMIPEXOLE
     Indication: Product used for unknown indication
     Dosage: 1.57 MICROGRAM AT 5 AM
     Route: 065
  2. CARBIDOPA\LEVODOPA [Suspect]
     Active Substance: CARBIDOPA\LEVODOPA
     Indication: Parkinson^s disease
     Dosage: CR 0.6MLS; ED 1.0MLS; MD 6.0MLS
     Route: 050
  3. CARBIDOPA\LEVODOPA [Suspect]
     Active Substance: CARBIDOPA\LEVODOPA
     Dosage: UNK
     Route: 050
  4. MOVICOL [Concomitant]
     Active Substance: POLYETHYLENE GLYCOL 3350\POTASSIUM CHLORIDE\SODIUM BICARBONATE\SODIUM CHLORIDE
     Indication: Product used for unknown indication
     Dosage: 1 SACHET, ONCE A DAY
     Route: 065
  5. ENTACAPONE [Concomitant]
     Active Substance: ENTACAPONE
     Indication: Product used for unknown indication
     Dosage: 200 MILLIGRAM, TWO TIMES A DAY
     Route: 065
  6. RASAGILINE [Concomitant]
     Active Substance: RASAGILINE
     Indication: Product used for unknown indication
     Dosage: 1 MILLIGRAM, ONCE A DAY
     Route: 065
  7. SINEMET [Concomitant]
     Active Substance: CARBIDOPA\LEVODOPA
     Indication: Product used for unknown indication
     Dosage: SINMET CR, 25 MGS/ 100 MGS AT 20.30 AND 22:00
     Route: 065

REACTIONS (18)
  - Haematochezia [Unknown]
  - Stoma site haemorrhage [Unknown]
  - Device dislocation [Unknown]
  - Abdominal distension [Not Recovered/Not Resolved]
  - Stoma site discharge [Unknown]
  - Constipation [Recovered/Resolved]
  - Tremor [Unknown]
  - Abdominal pain [Unknown]
  - Stoma site infection [Unknown]
  - Muscle rigidity [Not Recovered/Not Resolved]
  - Stoma site pain [Unknown]
  - Peripheral swelling [Unknown]
  - Freezing phenomenon [Not Recovered/Not Resolved]
  - Erythema [Unknown]
  - On and off phenomenon [Unknown]
  - Device expulsion [Unknown]
  - Drug ineffective [Unknown]
  - Wrong device used [Recovered/Resolved]

NARRATIVE: CASE EVENT DATE: 20220201
